FAERS Safety Report 7970216-6 (Version None)
Quarter: 2011Q4

REPORT INFORMATION
  Report Type: 
  Country: None (occurrence: None)
  Receive Date: 20111212
  Receipt Date: 20111201
  Transmission Date: 20120403
  Serious: Yes (Hospitalization)
  Sender: FDA-Public Use
  Company Number: US-JNJFOC-20111201790

PATIENT
  Sex: Male
  Weight: 36 kg

DRUGS (6)
  1. PREDNISONE TAB [Concomitant]
  2. CORTIFOAM [Concomitant]
     Route: 054
  3. REMICADE [Suspect]
     Route: 042
     Dates: start: 20111005
  4. METHOTREXATE [Concomitant]
  5. FOLIC ACID [Concomitant]
  6. REMICADE [Suspect]
     Indication: CROHN'S DISEASE
     Route: 042
     Dates: start: 20110810

REACTIONS (2)
  - CROHN'S DISEASE [None]
  - ANAEMIA [None]
